FAERS Safety Report 5218065-6 (Version None)
Quarter: 2007Q1

REPORT INFORMATION
  Report Type: 
  Country: None (occurrence: None)
  Receive Date: 20061130
  Receipt Date: 20060718
  Transmission Date: 20070707
  Serious: Yes (Hospitalization, Other)
  Sender: FDA-Public Use
  Company Number: USA0508105784

PATIENT
  Age: 62 Year
  Sex: Female
  Weight: 70.3 kg

DRUGS (7)
  1. ZYPREXA [Suspect]
     Indication: DEPRESSION
     Dosage: SEE IMAGE
     Dates: start: 20031117, end: 20050101
  2. TOPROL-XL [Concomitant]
  3. ZOLOFT [Concomitant]
  4. VYTORIN [Concomitant]
  5. BEXTRA [Concomitant]
  6. BUPROPION HCL [Concomitant]
  7. SERTRALINE [Concomitant]

REACTIONS (7)
  - ABDOMINAL PAIN [None]
  - BODY TEMPERATURE INCREASED [None]
  - DIABETES MELLITUS NON-INSULIN-DEPENDENT [None]
  - MEMORY IMPAIRMENT [None]
  - PANCREATITIS [None]
  - STOMACH DISCOMFORT [None]
  - WEIGHT DECREASED [None]
